FAERS Safety Report 18425710 (Version 1)
Quarter: 2020Q4

REPORT INFORMATION
  Report Type: Spontaneous
  Country: US (occurrence: US)
  Receive Date: 20201025
  Receipt Date: 20201025
  Transmission Date: 20210114
  Serious: Yes (Other)
  Sender: FDA-Public Use
  Company Number: None

PATIENT
  Age: 55 Year
  Sex: Female
  Weight: 50.4 kg

DRUGS (1)
  1. NATURE-THROID [Suspect]
     Active Substance: THYROID, PORCINE
     Indication: HYPOTHYROIDISM
     Dosage: ?          QUANTITY:1 TABLET(S);?
     Route: 048
     Dates: start: 20200822, end: 20201014

REACTIONS (8)
  - Insomnia [None]
  - Chest pain [None]
  - Pruritus [None]
  - Blood pressure increased [None]
  - Heart rate increased [None]
  - Palpitations [None]
  - Recalled product [None]
  - Anxiety [None]

NARRATIVE: CASE EVENT DATE: 20200923
